FAERS Safety Report 21063408 (Version 3)
Quarter: 2022Q3

REPORT INFORMATION
  Report Type: Spontaneous
  Country: US (occurrence: US)
  Receive Date: 20220711
  Receipt Date: 20220901
  Transmission Date: 20221026
  Serious: Yes (Hospitalization)
  Sender: FDA-Public Use
  Company Number: US-CELGENE-USA-20220302006

PATIENT
  Age: 76 Year
  Sex: Female

DRUGS (3)
  1. THALOMID [Suspect]
     Active Substance: THALIDOMIDE
     Indication: Gastrointestinal haemorrhage
     Dosage: 50 MILLIGRAM
     Route: 048
     Dates: start: 202108
  2. THALOMID [Suspect]
     Active Substance: THALIDOMIDE
     Indication: Plasma cell myeloma
     Dosage: 50 MILLIGRAM
     Route: 048
     Dates: start: 20220210
  3. THALOMID [Suspect]
     Active Substance: THALIDOMIDE
     Route: 048
     Dates: start: 202202

REACTIONS (7)
  - Muscle spasms [Unknown]
  - Chest pain [Unknown]
  - Oropharyngeal pain [Unknown]
  - Dysphonia [Unknown]
  - Bone pain [Unknown]
  - Neck mass [Unknown]
  - Skin disorder [Unknown]
